FAERS Safety Report 9891550 (Version 1)
Quarter: 2014Q1

REPORT INFORMATION
  Report Type: Spontaneous
  Country: GB (occurrence: GB)
  Receive Date: 20140212
  Receipt Date: 20140212
  Transmission Date: 20141002
  Serious: Yes (Death, Hospitalization)
  Sender: FDA-Public Use
  Company Number: PHHY2014GB015604

PATIENT
  Age: 39 Year
  Sex: Female

DRUGS (4)
  1. BASILIXIMAB [Suspect]
     Indication: IMMUNOSUPPRESSION
  2. PREDNISOLONE [Suspect]
     Indication: IMMUNOSUPPRESSION
     Dosage: 10 MG, QD
  3. MYCOPHENOLATE [Suspect]
     Indication: IMMUNOSUPPRESSION
     Dosage: 750 MG, BID
  4. TACROLIMUS [Suspect]
     Indication: IMMUNOSUPPRESSION
     Dosage: 6 MG, BID

REACTIONS (18)
  - Sepsis [Fatal]
  - Hypoxia [Unknown]
  - Hypotension [Unknown]
  - Tachycardia [Unknown]
  - Renal impairment [Unknown]
  - Thrombotic microangiopathy [Unknown]
  - Gastroenteritis norovirus [Unknown]
  - Abdominal pain [Unknown]
  - Jejunal ulcer [Unknown]
  - Vomiting [Unknown]
  - Diarrhoea [Unknown]
  - Gastrointestinal haemorrhage [Unknown]
  - Haematemesis [Unknown]
  - Melaena [Unknown]
  - Multi-organ failure [Unknown]
  - Coagulopathy [Unknown]
  - Neutropenia [Unknown]
  - Anaemia [Unknown]
